FAERS Safety Report 6524307-7 (Version None)
Quarter: 2009Q4

REPORT INFORMATION
  Report Type: 
  Country: None (occurrence: None)
  Receive Date: 20091231
  Receipt Date: 20091215
  Transmission Date: 20100525
  Serious: Yes (Life-Threatening)
  Sender: FDA-Public Use
  Company Number: PT-MERCK-0912PRT00004

PATIENT
  Age: 26 Year
  Sex: Female
  Weight: 66 kg

DRUGS (6)
  1. EMEND [Suspect]
     Route: 065
     Dates: start: 20090729, end: 20090731
  2. FILGRASTIM [Suspect]
     Indication: CHEMOTHERAPY
     Route: 051
     Dates: start: 20090709, end: 20090731
  3. FLUOROURACIL [Concomitant]
     Route: 041
     Dates: start: 20090613
  4. EPIRUBICIN HYDROCHLORIDE [Concomitant]
     Route: 041
     Dates: start: 20090613, end: 20090729
  5. DOCETAXEL [Concomitant]
     Route: 041
     Dates: start: 20090819, end: 20090819
  6. CYCLOPHOSPHAMIDE [Concomitant]
     Route: 065
     Dates: start: 20090613

REACTIONS (5)
  - ANAPHYLACTIC REACTION [None]
  - DYSPNOEA [None]
  - LARYNGEAL OEDEMA [None]
  - PARAESTHESIA [None]
  - TACHYCARDIA [None]
